FAERS Safety Report 12468402 (Version 2)
Quarter: 2016Q3

REPORT INFORMATION
  Report Type: Other
  Country: US (occurrence: US)
  Receive Date: 20160615
  Receipt Date: 20160720
  Transmission Date: 20161109
  Serious: Yes (Hospitalization)
  Sender: FDA-Public Use
  Company Number: US-SHEFFIELD PHARMACEUTICALS, LLC-1053822

PATIENT
  Age: 68 Year
  Sex: Female
  Weight: 68.18 kg

DRUGS (1)
  1. EQUATE ORASOL [Suspect]
     Active Substance: BENZOCAINE
     Route: 048
     Dates: start: 20160405, end: 20160406

REACTIONS (4)
  - Paraesthesia [Recovered/Resolved]
  - Confusional state [Recovered/Resolved]
  - Headache [Recovered/Resolved]
  - Heart rate [Recovered/Resolved]

NARRATIVE: CASE EVENT DATE: 20160407
